FAERS Safety Report 5097470-5 (Version None)
Quarter: 2006Q3

REPORT INFORMATION
  Report Type: 
  Country: None (occurrence: None)
  Receive Date: 20060901
  Receipt Date: 20060824
  Transmission Date: 20061208
  Serious: Yes (Other)
  Sender: FDA-Public Use
  Company Number: 2006103486

PATIENT
  Age: 67 Year
  Sex: Male
  Weight: 117.9352 kg

DRUGS (5)
  1. CELEBREX [Suspect]
     Indication: ARTHRITIS
     Dates: start: 20050101
  2. BEXTRA [Suspect]
     Indication: ARTHRITIS
  3. HYDROCORTISONE [Concomitant]
  4. ASACOL [Concomitant]
  5. FLAXSEED OIL (LINSEED OIL) [Concomitant]

REACTIONS (4)
  - BLADDER NEOPLASM [None]
  - CONDITION AGGRAVATED [None]
  - DEFAECATION URGENCY [None]
  - LARGE INTESTINAL ULCER [None]
